FAERS Safety Report 5792055-7 (Version None)
Quarter: 2008Q2

REPORT INFORMATION
  Report Type: 
  Country: None (occurrence: None)
  Receive Date: 20080626
  Receipt Date: 20080616
  Transmission Date: 20081010
  Serious: Yes (Other)
  Sender: FDA-Public Use
  Company Number: TR-AVENTIS-200815923GDDC

PATIENT
  Sex: Female
  Weight: 100 kg

DRUGS (6)
  1. LANTUS [Suspect]
     Route: 058
     Dates: start: 20080102, end: 20080201
  2. OPTIPEN (INSULIN PUMP) [Suspect]
  3. DIAMICRON [Concomitant]
     Dosage: DOSE QUANTITY: 2
     Route: 048
  4. GLIFOR [Concomitant]
     Dosage: DOSE QUANTITY: 2
     Route: 048
  5. LIPOFEN [Concomitant]
     Dosage: DOSE QUANTITY: 1
     Route: 048
  6. UNKNOWN DRUG [Concomitant]
     Dosage: DOSE QUANTITY: 1
     Route: 048

REACTIONS (1)
  - WEIGHT INCREASED [None]
